FAERS Safety Report 11806599 (Version 1)
Quarter: 2015Q4

REPORT INFORMATION
  Report Type: Report from Study
  Country: BR (occurrence: BR)
  Receive Date: 20151207
  Receipt Date: 20151207
  Transmission Date: 20160305
  Serious: Yes (Other)
  Sender: FDA-Public Use
  Company Number: BR-BRISTOL-MYERS SQUIBB COMPANY-BMS-2015-080788

PATIENT
  Age: 56 Year
  Sex: Female

DRUGS (1)
  1. ABATACEPT [Suspect]
     Active Substance: ABATACEPT
     Indication: RHEUMATOID ARTHRITIS
     Dosage: 500 MG, QMO (2 VIALS OF 250MG)
     Route: 042

REACTIONS (5)
  - Pain [Unknown]
  - Peripheral swelling [Unknown]
  - Paralysis [Unknown]
  - Suspected counterfeit product [Unknown]
  - Malaise [Unknown]

NARRATIVE: CASE EVENT DATE: 201510
